FAERS Safety Report 4339481-0 (Version None)
Quarter: 2004Q2

REPORT INFORMATION
  Report Type: 
  Country: None (occurrence: None)
  Receive Date: 20040415
  Receipt Date: 20040405
  Transmission Date: 20050107
  Serious: Yes (Other)
  Sender: FDA-Public Use
  Company Number: US-BRISTOL-MYERS SQUIBB COMPANY-12557237

PATIENT
  Age: 45 Year
  Sex: Male

DRUGS (5)
  1. SERZONE [Suspect]
     Dosage: INITIAL DOSE 100MG AM/ 150 MG PM
     Route: 048
     Dates: start: 19961105
  2. TRAZODONE HCL [Concomitant]
  3. TEGRETOL [Concomitant]
  4. ZOLOFT [Concomitant]
  5. ACIPHEX [Concomitant]

REACTIONS (3)
  - CHOLELITHIASIS [None]
  - HEPATIC CIRRHOSIS [None]
  - HEPATITIS [None]
